FAERS Safety Report 24197861 (Version 2)
Quarter: 2024Q3

REPORT INFORMATION
  Report Type: Report from Study
  Country: PT (occurrence: PT)
  Receive Date: 20240811
  Receipt Date: 20240827
  Transmission Date: 20241017
  Serious: Yes (Other)
  Sender: ABBVIE
  Company Number: PT-ABBVIE-5864029

PATIENT
  Sex: Male

DRUGS (15)
  1. CARBIDOPA\LEVODOPA [Suspect]
     Active Substance: CARBIDOPA\LEVODOPA
     Indication: Parkinson^s disease
     Dosage: 20 MG + 5 MGMORN:15CC;MAINT:4.3CC/H;EXT:2CC
     Route: 050
     Dates: start: 20220601, end: 20220601
  2. CARBIDOPA\LEVODOPA [Suspect]
     Active Substance: CARBIDOPA\LEVODOPA
     Dosage: 20 MG + 5 MGMORN:16.5CC;MAINT:5.7CC/H;EXT:3.5CC
     Route: 050
     Dates: start: 2024
  3. CARBIDOPA\LEVODOPA [Suspect]
     Active Substance: CARBIDOPA\LEVODOPA
     Dosage: 20 MG + 5 MGMORN:15CC;MAINT:4.3CC/H;EXT:2CC
     Route: 050
     Dates: start: 20220602
  4. MIDODRINE [Concomitant]
     Active Substance: MIDODRINE
     Indication: Product used for unknown indication
     Dosage: 4 TABLET 3 TABLET IN THE MORNING + 1 TAB AT LUNCH
     Dates: start: 202305
  5. TRAZONE AC [Concomitant]
     Indication: Product used for unknown indication
     Dosage: 1 TABLET 150 MG AT BEDTIME BEFORE DUODOPA
     Route: 048
  6. CLONAZEPAM [Concomitant]
     Active Substance: CLONAZEPAM
     Indication: Product used for unknown indication
     Dosage: FREQUENCY TEXT:  AT BEDTIME BEFORE DUODOPA
     Route: 048
  7. METFORMIN PAMOATE [Concomitant]
     Active Substance: METFORMIN PAMOATE
     Indication: Product used for unknown indication
     Dosage: METFORMIN 2 TABLET 700MG BEFORE DUODOPA
     Route: 048
  8. PRAVASTATIN SODIUM [Concomitant]
     Active Substance: PRAVASTATIN SODIUM
     Indication: Product used for unknown indication
     Dosage: 1 TABLET FORM STRENGTH: 40MG AT BEDTIME BEFORE DUODOPA
     Route: 048
  9. CARVEDILOL [Concomitant]
     Active Substance: CARVEDILOL
     Indication: Product used for unknown indication
     Dosage: FREQUENCY TEXT: AT DINNER START DATE TEXT: BEFORE DUODOPA
     Route: 048
  10. CYANOCOBALAMIN\FOLIC ACID\PYRIDOXINE HYDROCHLORIDE [Concomitant]
     Active Substance: CYANOCOBALAMIN\FOLIC ACID\PYRIDOXINE HYDROCHLORIDE
     Indication: Product used for unknown indication
     Dosage: 5MG 1 TABLET ON SATURDAY AND SUNDAY BEFORE DUODOPA
     Route: 048
  11. WARFARIN [Concomitant]
     Active Substance: WARFARIN
     Indication: Product used for unknown indication
     Dosage: 5MG 1+ 1/2 TABLET ALTERNATING WITH 2 TABLETS BEFORE DUODOPA
     Route: 048
  12. GABAPENTIN [Concomitant]
     Active Substance: GABAPENTIN
     Indication: Product used for unknown indication
     Dosage: 2 TABLET 300,BEFORE DUODOPA
     Route: 048
  13. BENSERAZIDE HYDROCHLORIDE\LEVODOPA [Concomitant]
     Active Substance: BENSERAZIDE HYDROCHLORIDE\LEVODOPA
     Indication: Product used for unknown indication
     Dosage: LEVODOPA + BENSERAZIDE 2 TABLET AT BEDTIME BEFORE DUODOPA? AT BEDTIME
     Route: 048
  14. CLOZAPINE [Concomitant]
     Active Substance: CLOZAPINE
     Indication: Product used for unknown indication
     Dosage: BEFORE DUODOPA
     Route: 048
  15. Zepacla [Concomitant]
     Indication: Product used for unknown indication
     Dosage: 1 TABLET 0.5MG AT BEDTIME BEFORE DUODOPA
     Route: 048

REACTIONS (4)
  - Weight decreased [Not Recovered/Not Resolved]
  - Decreased appetite [Not Recovered/Not Resolved]
  - Choking [Not Recovered/Not Resolved]
  - Dysphagia [Not Recovered/Not Resolved]

NARRATIVE: CASE EVENT DATE: 20240601
